FAERS Safety Report 12549839 (Version 1)
Quarter: 2016Q3

REPORT INFORMATION
  Report Type: Not Available
  Country: CN (occurrence: CN)
  Receive Date: 20160712
  Receipt Date: 20160712
  Transmission Date: 20161109
  Serious: Yes (Hospitalization, Other)
  Sender: FDA-Public Use
  Company Number: CN-NAPPMUNDI-GBR-2016-0038265

PATIENT
  Age: 69 Year
  Sex: Female
  Weight: 52 kg

DRUGS (3)
  1. MORPHINE SULFATE PR TABLET [Suspect]
     Active Substance: MORPHINE SULFATE
     Indication: ABDOMINAL PAIN
     Dosage: 30 MG, DAILY
     Route: 048
     Dates: start: 20160206, end: 20160215
  2. MORPHINE SULFATE PR TABLET [Suspect]
     Active Substance: MORPHINE SULFATE
     Dosage: 20 MG, DAILY
     Route: 048
     Dates: start: 20160202, end: 20160206
  3. MORPHINE HYDROCHLORIDE [Concomitant]
     Active Substance: MORPHINE HYDROCHLORIDE
     Indication: ABDOMINAL PAIN
     Dosage: 10 MG, DAILY
     Route: 030

REACTIONS (3)
  - Respiratory depression [Unknown]
  - Oliguria [Unknown]
  - Somnolence [Unknown]

NARRATIVE: CASE EVENT DATE: 20160212
